FAERS Safety Report 7178379-X (Version None)
Quarter: 2010Q4

REPORT INFORMATION
  Report Type: 
  Country: None (occurrence: None)
  Receive Date: 20101220
  Receipt Date: 20101209
  Transmission Date: 20110411
  Serious: Yes (Hospitalization)
  Sender: FDA-Public Use
  Company Number: US-ASTRAZENECA-2008UW11585

PATIENT
  Age: 82 Year
  Sex: Male

DRUGS (12)
  1. ATACAND [Suspect]
     Indication: HEART RATE ABNORMAL
     Route: 048
     Dates: start: 20080601
  2. ATACAND [Suspect]
     Indication: HYPERTENSION
     Route: 048
     Dates: start: 20080601
  3. ATACAND [Suspect]
     Indication: ARTERIOSCLEROSIS
     Route: 048
     Dates: start: 20080601
  4. ATACAND [Suspect]
     Route: 048
  5. ATACAND [Suspect]
     Route: 048
  6. ATACAND [Suspect]
     Route: 048
  7. CARDIZEM [Concomitant]
     Indication: HYPERTENSION
     Route: 048
     Dates: start: 20070101
  8. PRAVACHOL [Concomitant]
  9. TYLENOL (CAPLET) [Concomitant]
  10. ASPIRIN [Concomitant]
     Route: 048
  11. VIT D [Concomitant]
     Route: 048
     Dates: start: 20100801
  12. FOLIC GLUCONATE [Concomitant]
     Route: 048
     Dates: start: 20100801

REACTIONS (13)
  - ANXIETY [None]
  - BALANCE DISORDER [None]
  - BLOOD PRESSURE INCREASED [None]
  - DIVERTICULITIS [None]
  - DIZZINESS [None]
  - DRUG INEFFECTIVE [None]
  - FALL [None]
  - HAEMORRHAGE [None]
  - HEADACHE [None]
  - HEART RATE IRREGULAR [None]
  - POLLAKIURIA [None]
  - TENSION [None]
  - VERTIGO [None]
